FAERS Safety Report 13342035 (Version 1)
Quarter: 2017Q1

REPORT INFORMATION
  Report Type: Spontaneous
  Country: US (occurrence: US)
  Receive Date: 20170316
  Receipt Date: 20170316
  Transmission Date: 20170428
  Serious: Yes (Other)
  Sender: FDA-Public Use
  Company Number: None

PATIENT
  Age: 60 Year
  Sex: Female

DRUGS (1)
  1. APLISOL [Suspect]
     Active Substance: TUBERCULIN PURIFIED PROTEIN DERIVATIVE
     Indication: INVESTIGATION
     Route: 023

REACTIONS (4)
  - Application site swelling [None]
  - Application site pruritus [None]
  - Application site warmth [None]
  - Application site erythema [None]

NARRATIVE: CASE EVENT DATE: 20170117
